FAERS Safety Report 8224875-3 (Version None)
Quarter: 2012Q1

REPORT INFORMATION
  Report Type: 
  Country: None (occurrence: None)
  Receive Date: 20120319
  Receipt Date: 20120130
  Transmission Date: 20120608
  Serious: Yes (Hospitalization)
  Sender: FDA-Public Use
  Company Number: WAES 1112USA03455

PATIENT
  Age: 73 Year
  Sex: Female

DRUGS (11)
  1. ATORIS [Concomitant]
  2. SALURETIN (CHLORTHALIDONE) [Concomitant]
  3. TAFLUPROST [Suspect]
     Indication: OPEN ANGLE GLAUCOMA
     Dosage: 1 DRPS/TID
     Route: 047
     Dates: start: 20110823
  4. TAFLUPROST [Suspect]
     Indication: OCULAR HYPERTENSION
     Dosage: 1 DRPS/TID
     Route: 047
     Dates: start: 20110823
  5. TIMOLOL MALEATE [Suspect]
     Indication: OPEN ANGLE GLAUCOMA
     Dosage: 1 DRPS/TID
     Route: 048
     Dates: start: 20110823
  6. TIMOLOL MALEATE [Suspect]
     Indication: OCULAR HYPERTENSION
     Dosage: 1 DRPS/TID
     Route: 048
     Dates: start: 20110823
  7. RASOLTAN [Concomitant]
  8. AGAPURIN [Concomitant]
  9. FELOHEXAL [Concomitant]
  10. ASPIRIN [Concomitant]
  11. GLIMEGAMMA [Concomitant]

REACTIONS (5)
  - HYPOXIA [None]
  - HYPOCAPNIA [None]
  - ASTHMA [None]
  - WHITE BLOOD CELL COUNT INCREASED [None]
  - BLOOD GLUCOSE INCREASED [None]
